FAERS Safety Report 18884600 (Version 1)
Quarter: 2021Q1

REPORT INFORMATION
  Report Type: Spontaneous
  Country: US (occurrence: US)
  Receive Date: 20210212
  Receipt Date: 20210212
  Transmission Date: 20210420
  Serious: Yes (Hospitalization, Other)
  Sender: FDA-Public Use
  Company Number: US-QUAGEN-2021QUALIT00015

PATIENT
  Age: 34 Year
  Sex: Female

DRUGS (14)
  1. BESIFLOXACIN [Concomitant]
     Active Substance: BESIFLOXACIN
     Indication: CONJUNCTIVITIS ALLERGIC
     Route: 065
  2. CALCIUM CARBONATE. [Interacting]
     Active Substance: CALCIUM CARBONATE
     Indication: BASEDOW^S DISEASE
     Route: 065
  3. RITUXIMAB. [Interacting]
     Active Substance: RITUXIMAB
     Indication: HYPERTHYROIDISM
  4. PROPYLTHIOURACIL. [Suspect]
     Active Substance: PROPYLTHIOURACIL
     Indication: HYPERTHYROIDISM
  5. LEVOFLOXACIN. [Concomitant]
     Active Substance: LEVOFLOXACIN
     Indication: PNEUMONIA
     Route: 048
  6. LEVOTHYROXINE. [Interacting]
     Active Substance: LEVOTHYROXINE
     Indication: HYPERTHYROIDISM
  7. RITUXIMAB. [Interacting]
     Active Substance: RITUXIMAB
     Indication: BASEDOW^S DISEASE
     Route: 042
  8. PROPYLTHIOURACIL. [Suspect]
     Active Substance: PROPYLTHIOURACIL
     Indication: BASEDOW^S DISEASE
     Route: 065
  9. LEVOTHYROXINE. [Interacting]
     Active Substance: LEVOTHYROXINE
     Indication: BASEDOW^S DISEASE
     Dosage: 125 MCG
     Route: 065
  10. CALCIUM CARBONATE. [Interacting]
     Active Substance: CALCIUM CARBONATE
     Indication: HYPERTHYROIDISM
  11. PREDNISONE. [Interacting]
     Active Substance: PREDNISONE
     Indication: BASEDOW^S DISEASE
     Route: 065
  12. PREDNISONE. [Interacting]
     Active Substance: PREDNISONE
     Indication: HYPERTHYROIDISM
  13. CHOLESTYRAMINE. [Interacting]
     Active Substance: CHOLESTYRAMINE
     Indication: URTICARIA
     Route: 065
  14. POTASSIUM IODINE [Interacting]
     Active Substance: POTASSIUM IODIDE
     Indication: URTICARIA
     Route: 065

REACTIONS (4)
  - Glomerulonephritis rapidly progressive [Recovered/Resolved]
  - Pulmonary haemorrhage [Recovered/Resolved]
  - Vasculitis [Recovered/Resolved]
  - Episcleritis [Recovered/Resolved]
